FAERS Safety Report 10161964 (Version 2)
Quarter: 2014Q3

REPORT INFORMATION
  Report Type: Report from Study
  Country: US (occurrence: None)
  Receive Date: 20140507
  Receipt Date: 20140827
  Transmission Date: 20150326
  Serious: Yes (Other)
  Sender: FDA-Public Use
  Company Number: 2318409

PATIENT
  Age: 55 Year

DRUGS (4)
  1. CYCLOPHOSPHAMIDE. [Suspect]
     Active Substance: CYCLOPHOSPHAMIDE
     Indication: CHRONIC LYMPHOCYTIC LEUKAEMIA
     Dosage: 864 MG MILLIGRAM(S), UNKNOWN, INTRAVENOUS (NOT OTHERWISE SPECIFIED)?
     Route: 042
     Dates: start: 20131209, end: 20131209
  2. DEXAMETHASONE. [Suspect]
     Active Substance: DEXAMETHASONE
     Indication: CHRONIC LYMPHOCYTIC LEUKAEMIA
     Dosage: 12 MG MILLIGRAM(S), 1 DAY, ORAL
     Route: 048
     Dates: start: 20131206, end: 20131217
  3. VINCRISTINE SULPHATE INJECTION (VINCRISTINE SULFATE) [Suspect]
     Active Substance: VINCRISTINE SULFATE
     Indication: CHRONIC LYMPHOCYTIC LEUKAEMIA
     Dosage: 1 MG MILLIGRAM(S), UNKNOWN, INTRAVENOUS (NOT OTHER SPECIFIED)?
     Route: 042
     Dates: start: 20131209, end: 20131209
  4. CONTRAST MEDIA [Suspect]
     Active Substance: UNSPECIFIED INGREDIENT
     Indication: PRODUCT USED FOR UNKNOWN INDICATION
     Dosage: NOT REPORTED, NOT REPORTED, UNKNOWN
     Dates: start: 20131206

REACTIONS (3)
  - Renal failure acute [None]
  - Tumour lysis syndrome [None]
  - Pseudohyperkalaemia [None]

NARRATIVE: CASE EVENT DATE: 20131217
